FAERS Safety Report 15274131 (Version 3)
Quarter: 2018Q3

REPORT INFORMATION
  Report Type: Spontaneous
  Country: GB (occurrence: GB)
  Receive Date: 20180814
  Receipt Date: 20180920
  Transmission Date: 20181010
  Serious: Yes (Other)
  Sender: FDA-Public Use
  Company Number: GB-ROCHE-2168960

PATIENT
  Sex: Female

DRUGS (3)
  1. XOLAIR [Suspect]
     Active Substance: OMALIZUMAB
     Indication: URTICARIA CHRONIC
     Route: 065
     Dates: start: 2015
  2. XOLAIR [Suspect]
     Active Substance: OMALIZUMAB
     Route: 065
     Dates: end: 201712
  3. XOLAIR [Suspect]
     Active Substance: OMALIZUMAB
     Route: 065

REACTIONS (4)
  - Alopecia [Unknown]
  - Abortion spontaneous [Unknown]
  - Urticarial vasculitis [Unknown]
  - Maternal exposure during pregnancy [Unknown]
